FAERS Safety Report 4593924-6 (Version None)
Quarter: 2005Q1

REPORT INFORMATION
  Report Type: 
  Country: None (occurrence: None)
  Receive Date: 20050218
  Receipt Date: 20050203
  Transmission Date: 20050727
  Serious: Yes (Hospitalization)
  Sender: FDA-Public Use
  Company Number: THYM-10416

PATIENT
  Age: 18 Month
  Sex: Male

DRUGS (3)
  1. THYMOGLOBULIN [Suspect]
     Indication: BONE MARROW TRANSPLANT
     Dosage: 2.5 MG/KG QD IV
     Route: 042
  2. HYDROCORTISONE [Concomitant]
  3. CHLORPHENIRAMINE MALEATE [Concomitant]

REACTIONS (3)
  - ENCEPHALOPATHY [None]
  - FEBRILE CONVULSION [None]
  - POSTURING [None]
